FAERS Safety Report 5945510-0 (Version None)
Quarter: 2008Q4

REPORT INFORMATION
  Report Type: 
  Country: None (occurrence: None)
  Receive Date: 20081107
  Receipt Date: 20081027
  Transmission Date: 20090506
  Serious: Yes (Other)
  Sender: FDA-Public Use
  Company Number: CA-PFIZER INC-2008091169

PATIENT

DRUGS (2)
  1. SUTENT [Suspect]
     Route: 048
  2. PIOGLITAZONE [Interacting]
     Route: 048

REACTIONS (2)
  - DRUG INTERACTION [None]
  - LIVER DISORDER [None]
